FAERS Safety Report 8809149 (Version 4)
Quarter: 2012Q4

REPORT INFORMATION
  Report Type: Report from Study
  Country: AR (occurrence: AR)
  Receive Date: 20120926
  Receipt Date: 20121030
  Transmission Date: 20130627
  Serious: Yes (Hospitalization)
  Sender: FDA-Public Use
  Company Number: AR-AMGEN-ARGCT2012060148

PATIENT
  Age: 44 Year
  Sex: Female
  Weight: 67.5 kg

DRUGS (6)
  1. ETANERCEPT [Suspect]
     Indication: RHEUMATOID ARTHRITIS
     Dosage: 1 ml, weekly
     Route: 058
     Dates: start: 20100111, end: 20120618
  2. METHOTREXATE SODIUM [Suspect]
     Indication: RHEUMATOID ARTHRITIS
     Dosage: UNK
     Dates: start: 20090818, end: 20120619
  3. FOLIC ACID [Concomitant]
     Indication: PROPHYLAXIS
     Dosage: UNK
     Route: 065
     Dates: start: 20090907
  4. MELOXICAM [Concomitant]
     Indication: ANALGESIC THERAPY
     Dosage: UNK
     Route: 065
     Dates: start: 20090205
  5. PARACETAMOL [Concomitant]
     Indication: ANALGESIC THERAPY
     Dosage: UNK
     Dates: start: 20090927
  6. PARACETAMOL [Concomitant]
     Dosage: UNK
     Route: 065
     Dates: start: 20090921

REACTIONS (1)
  - Bronchospasm [Recovered/Resolved]
